FAERS Safety Report 8539617-1 (Version None)
Quarter: 2012Q3

REPORT INFORMATION
  Report Type: 
  Country: None (occurrence: None)
  Receive Date: 20120726
  Receipt Date: 20120723
  Transmission Date: 20120928
  Serious: Yes (Hospitalization)
  Sender: FDA-Public Use
  Company Number: FR-PFIZER INC-2012172839

PATIENT
  Age: 49 Year
  Sex: Female

DRUGS (11)
  1. POTASSIUM CHLORIDE [Concomitant]
     Dosage: UNK
  2. ZINC GLUCONATE [Concomitant]
     Dosage: UNK
  3. MAGNE-B6 [Concomitant]
     Dosage: UNK
  4. LEXOMIL [Suspect]
     Dosage: 0.5 DF, AT BEDTIME
     Route: 048
  5. XANAX [Suspect]
     Dosage: 0.25 DF, AT BEDTIME
     Route: 048
  6. IMODIUM [Suspect]
     Dosage: 1 DF, DAILY AS NEEDED
     Route: 048
  7. SPASFON [Concomitant]
     Dosage: UNK, AS NEEDED
  8. HYDROCORTISONE [Suspect]
     Dosage: 20 MG ONCE DAILY IN THE MORNING
     Route: 048
  9. HUMIRA [Suspect]
     Dosage: 40 MG, 1X/WEEK
     Route: 058
     Dates: start: 20100101, end: 20120605
  10. ENTOCORT EC [Suspect]
     Dosage: 3 MG, 1X/DAY IN THE MORNING
     Route: 048
  11. ACETAMINOPHEN [Concomitant]
     Dosage: UNK,AS NEEDED

REACTIONS (2)
  - PULMONARY INFARCTION [None]
  - PULMONARY EMBOLISM [None]
